FAERS Safety Report 20770002 (Version 2)
Quarter: 2022Q2

REPORT INFORMATION
  Report Type: Spontaneous
  Country: BR (occurrence: BR)
  Receive Date: 20220429
  Receipt Date: 20220506
  Transmission Date: 20220721
  Serious: Yes (Life-Threatening, Other)
  Sender: FDA-Public Use
  Company Number: BR-NOVARTISPH-NVSC2022BR098160

PATIENT
  Sex: Male

DRUGS (2)
  1. TEGRETOL XR [Suspect]
     Active Substance: CARBAMAZEPINE
     Indication: Product used for unknown indication
     Dosage: 200 MG
     Route: 065
  2. TEGRETOL [Suspect]
     Active Substance: CARBAMAZEPINE
     Indication: Product used for unknown indication
     Dosage: UNK
     Route: 065

REACTIONS (11)
  - Near death experience [Unknown]
  - Epilepsy [Unknown]
  - Petit mal epilepsy [Unknown]
  - Dyspnoea [Unknown]
  - Illness [Unknown]
  - Anger [Unknown]
  - Condition aggravated [Unknown]
  - Nervousness [Unknown]
  - Screaming [Unknown]
  - Gait inability [Unknown]
  - Aggression [Unknown]
